FAERS Safety Report 5506337-7 (Version None)
Quarter: 2007Q4

REPORT INFORMATION
  Report Type: 
  Country: None (occurrence: None)
  Receive Date: 20071105
  Receipt Date: 20071022
  Transmission Date: 20080405
  Serious: Yes (Hospitalization)
  Sender: FDA-Public Use
  Company Number: CA-PURDUE-CAN_2007_0000395

PATIENT
  Sex: Female
  Weight: 95 kg

DRUGS (4)
  1. HYDROMORPHONE HCL [Suspect]
     Indication: CANCER PAIN
     Dosage: UNK MG, UNK
     Route: 065
  2. DILAUDID [Suspect]
     Indication: CANCER PAIN
     Dosage: UNK MG, UNK
     Route: 065
  3. SUTENT [Suspect]
     Indication: CERVIX CARCINOMA
     Dosage: 50 MG, DAILY
     Route: 048
     Dates: start: 20070309, end: 20070921
  4. GABAPENTIN [Suspect]
     Indication: CANCER PAIN
     Dosage: UNK MG, UNK
     Route: 065

REACTIONS (4)
  - ABASIA [None]
  - DYSPNOEA [None]
  - OLIGURIA [None]
  - PELVIC PAIN [None]
